FAERS Safety Report 8737495 (Version 2)
Quarter: 2013Q4

REPORT INFORMATION
  Report Type: Spontaneous
  Country: US (occurrence: US)
  Receive Date: 20120822
  Receipt Date: 20131105
  Transmission Date: 20140711
  Serious: Yes (Hospitalization)
  Sender: FDA-Public Use
  Company Number: US-009507513-1208USA000566

PATIENT
  Age: 51 Year
  Sex: Male

DRUGS (4)
  1. TEMODAR [Suspect]
     Indication: ASTROCYTOMA
     Dosage: 100 MG, Q6H
     Route: 048
     Dates: start: 201206, end: 2012
  2. KYTRIL [Concomitant]
  3. DEXILANT [Concomitant]
  4. EFFEXOR [Concomitant]

REACTIONS (2)
  - Myalgia [Not Recovered/Not Resolved]
  - Tic [Not Recovered/Not Resolved]
